FAERS Safety Report 11438107 (Version 2)
Quarter: 2015Q4

REPORT INFORMATION
  Report Type: Spontaneous
  Country: US (occurrence: US)
  Receive Date: 20150901
  Receipt Date: 20151015
  Transmission Date: 20160304
  Serious: No
  Sender: FDA-Public Use
  Company Number: PHEH2015US016580

PATIENT
  Age: 8 Year
  Sex: Male

DRUGS (4)
  1. TOBI [Suspect]
     Active Substance: TOBRAMYCIN
     Dosage: 1 DF, BID (X 14)
     Route: 055
     Dates: start: 20150824
  2. PULMOZYME [Suspect]
     Active Substance: DORNASE ALFA
     Dosage: 1 DF, UNK
     Route: 055
     Dates: start: 20150918
  3. PULMOZYME [Suspect]
     Active Substance: DORNASE ALFA
     Indication: CYSTIC FIBROSIS
     Dosage: 2.5 ML, QD
     Route: 055
     Dates: start: 20150720
  4. TOBI [Suspect]
     Active Substance: TOBRAMYCIN
     Indication: CYSTIC FIBROSIS
     Dosage: 300 MG/ML, BID
     Route: 055
     Dates: start: 20150721

REACTIONS (2)
  - Inappropriate schedule of drug administration [Unknown]
  - Off label use [Unknown]

NARRATIVE: CASE EVENT DATE: 20150806
